FAERS Safety Report 20498862 (Version 1)
Quarter: 2022Q1

REPORT INFORMATION
  Report Type: Spontaneous
  Country: US (occurrence: US)
  Receive Date: 20220222
  Receipt Date: 20220222
  Transmission Date: 20220423
  Serious: Yes (Hospitalization)
  Sender: FDA-Public Use
  Company Number: US-NOVOPROD-890997

PATIENT
  Sex: Female

DRUGS (1)
  1. NOVOLOG [Suspect]
     Active Substance: INSULIN ASPART
     Indication: Diabetes mellitus
     Dosage: UNK
     Route: 058

REACTIONS (6)
  - Spinal stenosis [Unknown]
  - Condition aggravated [Unknown]
  - Diabetes mellitus inadequate control [Unknown]
  - Muscular weakness [Unknown]
  - Dyspnoea [Unknown]
  - Diabetic neuropathy [Unknown]
